FAERS Safety Report 10908348 (Version 1)
Quarter: 2015Q1

REPORT INFORMATION
  Report Type: Spontaneous
  Country: US (occurrence: None)
  Receive Date: 20150309
  Receipt Date: 20150309
  Transmission Date: 20150721
  Serious: Yes (Disabling)
  Sender: FDA-Public Use
  Company Number: None

PATIENT
  Age: 31 Year
  Sex: Female
  Weight: 151.96 kg

DRUGS (16)
  1. CITALOPRAM [Suspect]
     Active Substance: CITALOPRAM HYDROBROMIDE
     Indication: DEPRESSION
     Dosage: 1 AND HALF
     Route: 048
  2. ALIVIL [Concomitant]
  3. ZOCOR [Concomitant]
     Active Substance: SIMVASTATIN
  4. ALDACTONE [Concomitant]
     Active Substance: SPIRONOLACTONE
  5. MELATONIN [Concomitant]
     Active Substance: MELATONIN
  6. IMITREX [Concomitant]
     Active Substance: SUMATRIPTAN\SUMATRIPTAN SUCCINATE
  7. MECLIZINE [Concomitant]
     Active Substance: MECLIZINE\MECLIZINE HYDROCHLORIDE
  8. METFORMIN [Concomitant]
     Active Substance: METFORMIN HYDROCHLORIDE
  9. TOPAMAX [Concomitant]
     Active Substance: TOPIRAMATE
  10. TRILEPTAL [Concomitant]
     Active Substance: OXCARBAZEPINE
  11. IBUPROFEN. [Concomitant]
     Active Substance: IBUPROFEN
  12. PRISTIQ (REPLACEMENT) MUCIENX-D [Concomitant]
  13. CLARITIN REDITABS [Concomitant]
     Active Substance: LORATADINE
  14. VICKS NYQUIL [Concomitant]
     Active Substance: ACETAMINOPHEN\DEXTROMETHORPHAN HYDROBROMIDE\DOXYLAMINE SUCCINATE
  15. FLONASE [Concomitant]
     Active Substance: FLUTICASONE PROPIONATE
  16. PROMETHZINE [Concomitant]

REACTIONS (1)
  - Migraine [None]
